FAERS Safety Report 13803437 (Version 1)
Quarter: 2017Q3

REPORT INFORMATION
  Report Type: Spontaneous
  Country: US (occurrence: US)
  Receive Date: 20170728
  Receipt Date: 20170728
  Transmission Date: 20171127
  Serious: Yes (Hospitalization)
  Sender: FDA-Public Use
  Company Number: None

PATIENT
  Age: 82 Year
  Sex: Female
  Weight: 81.9 kg

DRUGS (3)
  1. CENTRUM SILVER [Concomitant]
     Active Substance: MINERALS\VITAMINS
  2. VENLAFAXINE HCL [Suspect]
     Active Substance: VENLAFAXINE HYDROCHLORIDE
     Indication: FIBROMYALGIA
     Dosage: ?          QUANTITY:1 CAPSULE(S);?
     Route: 048
     Dates: start: 20170715, end: 20170725
  3. LYSINE [Concomitant]
     Active Substance: LYSINE

REACTIONS (5)
  - Dysstasia [None]
  - Dizziness [None]
  - Tremor [None]
  - Disorientation [None]
  - Muscular weakness [None]

NARRATIVE: CASE EVENT DATE: 20170725
